FAERS Safety Report 6413981-1 (Version None)
Quarter: 2009Q4

REPORT INFORMATION
  Report Type: 
  Country: None (occurrence: None)
  Receive Date: 20091026
  Receipt Date: 20091015
  Transmission Date: 20100525
  Serious: Yes (Hospitalization)
  Sender: FDA-Public Use
  Company Number: FR-ASTRAZENECA-2009SE20715

PATIENT
  Age: 89 Year
  Sex: Female

DRUGS (5)
  1. NEXIUM [Suspect]
     Indication: GASTROOESOPHAGEAL REFLUX DISEASE
     Route: 048
  2. SEROPLEX [Interacting]
  3. FORTEO [Concomitant]
     Route: 058
  4. TAREG [Concomitant]
  5. ACETAMINOPHEN [Concomitant]

REACTIONS (3)
  - BLOOD SODIUM DECREASED [None]
  - DRUG INTERACTION [None]
  - ISCHAEMIC STROKE [None]
